FAERS Safety Report 10621275 (Version 1)
Quarter: 2014Q4

REPORT INFORMATION
  Report Type: Spontaneous
  Country: FR (occurrence: FR)
  Receive Date: 20141203
  Receipt Date: 20141203
  Transmission Date: 20150529
  Serious: Yes (Hospitalization)
  Sender: FDA-Public Use
  Company Number: FR-BRISTOL-MYERS SQUIBB COMPANY-21653936

PATIENT
  Age: 72 Year
  Sex: Male

DRUGS (1)
  1. ELIQUIS [Suspect]
     Active Substance: APIXABAN
     Dates: start: 201407

REACTIONS (4)
  - Activated partial thromboplastin time prolonged [Unknown]
  - Kaolin cephalin clotting time prolonged [Unknown]
  - Coagulation factor decreased [Unknown]
  - Arthropathy [Unknown]
